FAERS Safety Report 15767453 (Version 4)
Quarter: 2019Q4

REPORT INFORMATION
  Report Type: Spontaneous
  Country: CA (occurrence: CA)
  Receive Date: 20181227
  Receipt Date: 20191121
  Transmission Date: 20200122
  Serious: Yes (Death, Life-Threatening, Hospitalization)
  Sender: FDA-Public Use
  Company Number: CA-TEVA-2018-CA-992712

PATIENT
  Age: 62 Year
  Sex: Male

DRUGS (4)
  1. PREDNISONE. [Suspect]
     Active Substance: PREDNISONE
     Indication: PRODUCT USED FOR UNKNOWN INDICATION
     Dosage: 75 MILLIGRAM DAILY; STARTED TEN WEEKS BEFORE HOSPITAL ADMISSION; SLOWLY TAPERED
     Route: 065
  2. HYDROCORTISONE. [Suspect]
     Active Substance: HYDROCORTISONE
     Indication: PRODUCT USED FOR UNKNOWN INDICATION
     Dosage: 200 MILLIGRAM DAILY; THROUGHOUT THE ADMISSION
     Route: 042
  3. METHYLPREDNISOLONE. [Suspect]
     Active Substance: METHYLPREDNISOLONE
     Indication: ORGANISING PNEUMONIA
     Dosage: 200 MILLIGRAM DAILY; THROUGHOUT THE ADMISSION
     Route: 042
  4. PREDNISONE. [Suspect]
     Active Substance: PREDNISONE
     Dosage: 35 MILLIGRAM DAILY; AT THE TIME OF ADMISSION
     Route: 065

REACTIONS (5)
  - Strongyloidiasis [Fatal]
  - Hypoxia [Unknown]
  - Septic shock [Fatal]
  - Acute kidney injury [Unknown]
  - Respiratory failure [Unknown]
